FAERS Safety Report 6707575-8 (Version None)
Quarter: 2010Q2

REPORT INFORMATION
  Report Type: 
  Country: None (occurrence: None)
  Receive Date: 20100429
  Receipt Date: 20100416
  Transmission Date: 20101027
  Serious: Yes (Hospitalization, Other)
  Sender: FDA-Public Use
  Company Number: 2010SCPR000370

PATIENT
  Age: 34 Year
  Sex: Female
  Weight: 100 kg

DRUGS (11)
  1. RISPERIDONE [Suspect]
     Indication: DRUG USE FOR UNKNOWN INDICATION
     Dosage: 2 MG, ORAL
     Route: 048
  2. DEXTROMETHORPHAN HYDROBROMIDE [Suspect]
     Indication: NASOPHARYNGITIS
     Dosage: 90 MG DAILY, ORAL, 180 MG
     Route: 048
  3. BROMAZEPAM (BROMAZEPAM) [Suspect]
     Indication: DRUG USE FOR UNKNOWN INDICATION
     Dosage: 6 MG, QD
  4. FLUNITRAZEPAM (FLUNITRAZEPAM) [Suspect]
     Indication: DRUG USE FOR UNKNOWN INDICATION
     Dosage: 2 MG, ORAL
     Route: 048
  5. TRIAZOLAM [Suspect]
     Indication: DRUG USE FOR UNKNOWN INDICATION
     Dosage: 0.25 MG, QD
  6. RILMAZAFONE HYDROCHLORIDE (RILMAZAFONE HYDROCHLORIDE) [Suspect]
     Indication: DRUG USE FOR UNKNOWN INDICATION
     Dosage: 2 MG QD
  7. AMITRIPTYLINE HYDROCHLORIDE [Suspect]
     Indication: DRUG USE FOR UNKNOWN INDICATION
     Dosage: 75 MG
  8. LEVOPROME [Suspect]
     Indication: DRUG USE FOR UNKNOWN INDICATION
     Dosage: 150 MG, ORAL
     Route: 048
  9. BIPERIDEN HYDROCHLORIDE TAB [Suspect]
     Indication: DRUG USE FOR UNKNOWN INDICATION
     Dosage: 3 MG, ORAL
  10. PL GRANULE (PL GRANULE) [Suspect]
     Indication: NASOPHARYNGITIS
  11. LOXONIN /00890701/ (LOXOPROFEN) [Suspect]
     Dosage: 180 MG

REACTIONS (10)
  - COMMUNICATION DISORDER [None]
  - COUGH [None]
  - DRUG INTERACTION [None]
  - LOSS OF CONSCIOUSNESS [None]
  - OVERDOSE [None]
  - PNEUMONIA ASPIRATION [None]
  - RESPIRATORY DEPRESSION [None]
  - RHINORRHOEA [None]
  - SEROTONIN SYNDROME [None]
  - SOMNOLENCE [None]
